FAERS Safety Report 25318583 (Version 1)
Quarter: 2025Q2

REPORT INFORMATION
  Report Type: Spontaneous
  Country: US (occurrence: US)
  Receive Date: 20250515
  Receipt Date: 20250515
  Transmission Date: 20250717
  Serious: Yes (Hospitalization, Other)
  Sender: ACCORD
  Company Number: US-Accord-476833

PATIENT
  Age: 68 Year
  Sex: Male
  Weight: 71 kg

DRUGS (19)
  1. CARBOPLATIN [Suspect]
     Active Substance: CARBOPLATIN
     Indication: Lung adenocarcinoma stage IV
     Route: 042
     Dates: start: 20250220
  2. PEMETREXED [Suspect]
     Active Substance: PEMETREXED
     Indication: Lung adenocarcinoma stage IV
     Route: 042
     Dates: start: 20250220, end: 20250220
  3. PEMBROLIZUMAB [Concomitant]
     Active Substance: PEMBROLIZUMAB
     Indication: Lung adenocarcinoma stage IV
     Route: 042
     Dates: start: 20250220, end: 20250220
  4. ASPIRIN [Concomitant]
     Active Substance: ASPIRIN
     Dates: start: 202409
  5. SILDENAFIL [Concomitant]
     Active Substance: SILDENAFIL
     Dates: start: 20231020
  6. ALBUTEROL [Concomitant]
     Active Substance: ALBUTEROL
     Dates: start: 20241008
  7. ACETAMINOPHEN [Concomitant]
     Active Substance: ACETAMINOPHEN
     Dates: start: 20241230
  8. NICOTINE [Concomitant]
     Active Substance: NICOTINE
     Dates: start: 20241231
  9. LOSARTAN [Concomitant]
     Active Substance: LOSARTAN
     Dates: start: 20250214
  10. ATORVASTATIN [Concomitant]
     Active Substance: ATORVASTATIN
     Dates: start: 20250214
  11. AMLODIPINE [Concomitant]
     Active Substance: AMLODIPINE BESYLATE
     Dates: start: 20250214
  12. IBUPROFEN [Concomitant]
     Active Substance: IBUPROFEN
     Dates: start: 20250210
  13. FOLVITE [Concomitant]
     Active Substance: FOLIC ACID
  14. ZOFRAN [Concomitant]
     Active Substance: ONDANSETRON HYDROCHLORIDE
  15. ZYPREXA [Concomitant]
     Active Substance: OLANZAPINE
  16. COMPAZINE [Concomitant]
     Active Substance: PROCHLORPERAZINE MALEATE
  17. PEMETREXED [Suspect]
     Active Substance: PEMETREXED
     Indication: Lung adenocarcinoma stage IV
     Route: 042
     Dates: start: 20250313, end: 20250313
  18. CARBOPLATIN [Suspect]
     Active Substance: CARBOPLATIN
     Indication: Lung adenocarcinoma stage IV
     Route: 042
     Dates: start: 20250313, end: 20250313
  19. PEMBROLIZUMAB [Concomitant]
     Active Substance: PEMBROLIZUMAB
     Indication: Lung adenocarcinoma stage IV
     Route: 042
     Dates: start: 20250313, end: 20250313

REACTIONS (3)
  - Pyrexia [Recovered/Resolved]
  - Sinus tachycardia [Unknown]
  - Pulmonary oedema [Unknown]

NARRATIVE: CASE EVENT DATE: 20250225
